FAERS Safety Report 10364368 (Version 1)
Quarter: 2014Q3

REPORT INFORMATION
  Report Type: Spontaneous
  Country: US (occurrence: None)
  Receive Date: 20140804
  Receipt Date: 20140804
  Transmission Date: 20150326
  Serious: No
  Sender: FDA-Public Use
  Company Number: None

PATIENT
  Age: 54 Year
  Sex: Male

DRUGS (2)
  1. LAMOTRIGINE. [Suspect]
     Active Substance: LAMOTRIGINE
     Indication: BIPOLAR DISORDER
     Route: 048
     Dates: start: 20120112
  2. ANDROGEL [Concomitant]
     Active Substance: TESTOSTERONE

REACTIONS (5)
  - Product substitution issue [None]
  - Formication [None]
  - Judgement impaired [None]
  - Anxiety [None]
  - Emotional disorder [None]
